APPROVED DRUG PRODUCT: ZANAFLEX
Active Ingredient: TIZANIDINE HYDROCHLORIDE
Strength: EQ 2MG BASE
Dosage Form/Route: CAPSULE;ORAL
Application: N021447 | Product #001 | TE Code: AB
Applicant: LEGACY PHARMA USA INC
Approved: Aug 29, 2002 | RLD: Yes | RS: No | Type: RX